FAERS Safety Report 21797235 (Version 3)
Quarter: 2023Q2

REPORT INFORMATION
  Report Type: Spontaneous
  Country: US (occurrence: US)
  Receive Date: 20221230
  Receipt Date: 20230519
  Transmission Date: 20230722
  Serious: Yes (Other)
  Sender: FDA-Public Use
  Company Number: US-BRISTOL-MYERS SQUIBB COMPANY-2022-160317

PATIENT
  Age: 77 Year
  Sex: Female
  Weight: 79.83 kg

DRUGS (1)
  1. REVLIMID [Suspect]
     Active Substance: LENALIDOMIDE
     Indication: Plasma cell myeloma
     Dosage: FREQ: DAILY 21D ON 7D OFF
     Route: 048
     Dates: start: 20200801

REACTIONS (3)
  - Back pain [Not Recovered/Not Resolved]
  - Bronchitis [Unknown]
  - Pneumonia [Recovered/Resolved]
